FAERS Safety Report 7601808-1 (Version None)
Quarter: 2011Q3

REPORT INFORMATION
  Report Type: 
  Country: None (occurrence: None)
  Receive Date: 20110711
  Receipt Date: 20110703
  Transmission Date: 20111222
  Serious: Yes (Other)
  Sender: FDA-Public Use
  Company Number: US-PFIZER INC-2011148119

PATIENT
  Sex: Male

DRUGS (5)
  1. PROZAC [Concomitant]
     Indication: DEPRESSION
     Dosage: 20 MG, DAILY
     Route: 048
  2. PROZAC [Concomitant]
     Indication: SLEEP DISORDER
  3. TRAZODONE [Concomitant]
     Indication: SLEEP DISORDER
  4. ADVIL LIQUI-GELS [Suspect]
     Indication: HEADACHE
     Dosage: 400 MG, UNK
     Route: 048
  5. TRAZODONE [Concomitant]
     Indication: DEPRESSION
     Dosage: 50 MG, WEEKLY
     Route: 048

REACTIONS (2)
  - HYPERSENSITIVITY [None]
  - URTICARIA [None]
